FAERS Safety Report 19814138 (Version 1)
Quarter: 2021Q3

REPORT INFORMATION
  Report Type: Spontaneous
  Country: DE (occurrence: DE)
  Receive Date: 20210910
  Receipt Date: 20210910
  Transmission Date: 20211014
  Serious: Yes (Congenital Anomaly, Other)
  Sender: FDA-Public Use
  Company Number: DE-TEVA-2021-DE-1950257

PATIENT
  Age: 1 Day
  Sex: Female

DRUGS (2)
  1. DULOXETIN [Suspect]
     Active Substance: DULOXETINE
     Indication: DEPRESSION
     Dosage: 60 [MG / D (UP TO 30)] / 60 MG / D UNTIL GW 7, AFTERWARDS 30 MG / D
     Route: 064
     Dates: start: 20191223, end: 20200928
  2. REPEVAX [Concomitant]
     Active Substance: DIPHTHERIA AND TETANUS TOXOIDS AND ACELLULAR PERTUSSIS ADSORBED AND INACTIVATED POLIOVIRUS VACCINE
     Indication: IMMUNISATION
     Route: 064
     Dates: start: 20200730, end: 20200730

REACTIONS (4)
  - Atrial septal defect [Unknown]
  - Foetal exposure during pregnancy [Unknown]
  - Patent ductus arteriosus [Recovered/Resolved]
  - Abnormal palmar/plantar creases [Not Recovered/Not Resolved]

NARRATIVE: CASE EVENT DATE: 20191223
